FAERS Safety Report 14106053 (Version 2)
Quarter: 2017Q4

REPORT INFORMATION
  Report Type: Spontaneous
  Country: US (occurrence: US)
  Receive Date: 20171019
  Receipt Date: 20171124
  Transmission Date: 20180321
  Serious: No
  Sender: FDA-Public Use
  Company Number: US-009507513-1709USA011540

PATIENT
  Age: 24 Year
  Sex: Female
  Weight: 133.33 kg

DRUGS (1)
  1. NEXPLANON [Suspect]
     Active Substance: ETONOGESTREL
     Indication: CONTRACEPTION
     Dosage: 6 MCG, DAILY
     Route: 059
     Dates: start: 20170106, end: 20170124

REACTIONS (3)
  - Implant site extravasation [Recovered/Resolved]
  - Skin infection [Recovered/Resolved]
  - Product use issue [Unknown]

NARRATIVE: CASE EVENT DATE: 20170106
